FAERS Safety Report 8958276 (Version 1)
Quarter: 2012Q4

REPORT INFORMATION
  Report Type: Report from Study
  Country: FR (occurrence: FR)
  Receive Date: 20121211
  Receipt Date: 20121211
  Transmission Date: 20130627
  Serious: Yes (Death, Other)
  Sender: FDA-Public Use
  Company Number: FR-ROCHE-1165286

PATIENT
  Age: 75 Year
  Sex: Male

DRUGS (1)
  1. RITUXIMAB [Suspect]
     Indication: RHEUMATOID ARTHRITIS
     Route: 065

REACTIONS (5)
  - Ischaemic stroke [Fatal]
  - Pancytopenia [Unknown]
  - Musculoskeletal disorder [Unknown]
  - Cerebral atrophy [Unknown]
  - Disorientation [Unknown]
